FAERS Safety Report 10043245 (Version 2)
Quarter: 2014Q1

REPORT INFORMATION
  Report Type: Spontaneous
  Country: NL (occurrence: NL)
  Receive Date: 20140328
  Receipt Date: 20140328
  Transmission Date: 20141002
  Serious: Yes (Hospitalization)
  Sender: FDA-Public Use
  Company Number: NL-AMGEN-NLDSP2014013021

PATIENT
  Age: 58 Year
  Sex: Female

DRUGS (2)
  1. XGEVA [Suspect]
     Indication: PRODUCT USED FOR UNKNOWN INDICATION
     Dosage: 120 MG, Q4WK
     Route: 058
  2. CALCI CHEW [Concomitant]

REACTIONS (2)
  - Investigation [Unknown]
  - Pain in extremity [Unknown]
